FAERS Safety Report 9069651 (Version 1)
Quarter: 2013Q1

REPORT INFORMATION
  Report Type: Spontaneous
  Country: FR (occurrence: FR)
  Receive Date: 20130215
  Receipt Date: 20130215
  Transmission Date: 20140127
  Serious: Yes (Hospitalization, Other)
  Sender: FDA-Public Use
  Company Number: FR-BAXTER-2013BAX005554

PATIENT
  Age: 59 None
  Sex: Male

DRUGS (6)
  1. EXTRANEAL [Suspect]
     Indication: PERITONEAL DIALYSIS
     Route: 033
  2. EXTRANEAL [Suspect]
     Indication: PERITONEAL DIALYSIS
  3. CLAFORAN [Suspect]
     Indication: LUNG DISORDER
     Route: 065
  4. TAVANIC [Suspect]
     Indication: LUNG DISORDER
     Route: 065
  5. NUTRINEAL PD 4 A 1,1% D^ACIDES AMIN?S CLEAR-FLEX, SOLUTION POUR DIALYS [Concomitant]
     Indication: PERITONEAL DIALYSIS
     Route: 033
  6. DIANEAL PD4 GLUCOSE 1,36%, SOLUTION POUR DIALYSE P?RITON?AL EN POCHE [Concomitant]
     Indication: PERITONEAL DIALYSIS
     Dosage: 2 BAGS
     Route: 033

REACTIONS (2)
  - Lung disorder [Unknown]
  - Noninfectious peritonitis [Recovered/Resolved]
